FAERS Safety Report 9339486 (Version 1)
Quarter: 2013Q2

REPORT INFORMATION
  Report Type: Spontaneous
  Country: GB (occurrence: GB)
  Receive Date: 20130610
  Receipt Date: 20130610
  Transmission Date: 20140414
  Serious: Yes (Other)
  Sender: FDA-Public Use
  Company Number: GB-ELI_LILLY_AND_COMPANY-GB201305009716

PATIENT
  Age: 74 Year
  Sex: Female

DRUGS (1)
  1. FORSTEO [Suspect]
     Dosage: UNK, OTHER
     Route: 065

REACTIONS (5)
  - Pelvic fracture [Unknown]
  - Depression [Unknown]
  - Injection site erythema [Recovered/Resolved]
  - Bone pain [Unknown]
  - Pelvic pain [Unknown]
